FAERS Safety Report 8231383-2 (Version None)
Quarter: 2012Q1

REPORT INFORMATION
  Report Type: 
  Country: None (occurrence: None)
  Receive Date: 20120323
  Receipt Date: 20120312
  Transmission Date: 20120608
  Serious: No
  Sender: FDA-Public Use
  Company Number: US-B.I. PHARMACEUTICALS,INC./RIDGEFIELD-2012-BP-04720BP

PATIENT
  Age: 77 Year
  Sex: Female

DRUGS (6)
  1. CLARITIN [Concomitant]
     Indication: HYPERSENSITIVITY
  2. SYNTHROID [Concomitant]
     Indication: HYPOTHYROIDISM
  3. CALCIUM CARBONATE [Concomitant]
  4. VERAPAMIL [Concomitant]
  5. PRADAXA [Suspect]
     Indication: ATRIAL FIBRILLATION
     Dosage: 150 MG
     Route: 048
  6. MULTAQ [Suspect]
     Indication: ATRIAL FIBRILLATION
     Dates: start: 20111001

REACTIONS (7)
  - DIARRHOEA [None]
  - GASTRIC ULCER [None]
  - URINARY INCONTINENCE [None]
  - CONSTIPATION [None]
  - ABDOMINAL PAIN [None]
  - ERUCTATION [None]
  - IRRITABLE BOWEL SYNDROME [None]
